FAERS Safety Report 6240326-2 (Version None)
Quarter: 2009Q2

REPORT INFORMATION
  Report Type: 
  Country: None (occurrence: None)
  Receive Date: 20090623
  Receipt Date: 20080912
  Transmission Date: 20091009
  Serious: No
  Sender: FDA-Public Use
  Company Number: US-ASTRAZENECA-2008UW14607

PATIENT
  Age: 46 Year
  Sex: Female

DRUGS (7)
  1. PULMICORT FLEXHALER [Suspect]
     Indication: CHRONIC OBSTRUCTIVE PULMONARY DISEASE
     Route: 055
     Dates: start: 20080501
  2. PULMICORT FLEXHALER [Suspect]
     Indication: BRONCHITIS CHRONIC
     Route: 055
     Dates: start: 20080501
  3. ADVAIR HFA [Concomitant]
  4. BENICAR [Concomitant]
  5. SYNTHROID [Concomitant]
  6. OXYCODONE HCL [Concomitant]
  7. LEXAPRO [Concomitant]

REACTIONS (2)
  - DRUG INEFFECTIVE [None]
  - PNEUMONIA [None]
